FAERS Safety Report 6369621-3 (Version None)
Quarter: 2009Q3

REPORT INFORMATION
  Report Type: 
  Country: None (occurrence: None)
  Receive Date: 20090923
  Receipt Date: 20090915
  Transmission Date: 20100115
  Serious: Yes (Hospitalization, Disabling, Other)
  Sender: FDA-Public Use
  Company Number: US-ROCHE-653159

PATIENT
  Age: 70 Year
  Sex: Male

DRUGS (2)
  1. XELODA [Suspect]
     Indication: PROPHYLAXIS
     Dosage: THRICE IN THE MORNING AND EVENING FOR 7 DAYS AND THEN DID NOT TAKE FOR 7 DAYS.1ST AND 2ND SESSION
     Route: 065
  2. XELODA [Suspect]
     Dosage: THIRD SESSION AND FOURTH SESSION
     Route: 065

REACTIONS (6)
  - ASTHENIA [None]
  - BURNING SENSATION [None]
  - EPISTAXIS [None]
  - FATIGUE [None]
  - PARALYSIS [None]
  - SEPSIS [None]
